FAERS Safety Report 23659555 (Version 1)
Quarter: 2024Q1

REPORT INFORMATION
  Report Type: Spontaneous
  Country: CN (occurrence: CN)
  Receive Date: 20240321
  Receipt Date: 20240321
  Transmission Date: 20240409
  Serious: Yes (Hospitalization)
  Sender: FDA-Public Use
  Company Number: CN-ALLERGAN-2301491US

PATIENT
  Sex: Male

DRUGS (9)
  1. ACITRETIN [Suspect]
     Active Substance: ACITRETIN
     Indication: Erythrodermic psoriasis
     Dosage: DOSE DESC: UNK, FORM: UNKNOWN
     Route: 048
  2. ACITRETIN [Suspect]
     Active Substance: ACITRETIN
     Indication: Erythrodermic psoriasis
     Route: 048
  3. TENOFOVIR [Suspect]
     Active Substance: TENOFOVIR
     Indication: HIV infection
     Dosage: DAILY DOSE: 200.0 MG
     Route: 048
  4. LAMIVUDINE [Suspect]
     Active Substance: LAMIVUDINE
     Indication: HIV infection
     Dosage: DAILY DOSE: 100.0 MG
     Route: 048
  5. LOPINAVIR AND RITONAVIR [Suspect]
     Active Substance: LOPINAVIR\RITONAVIR
     Indication: HIV infection
     Dosage: DAILY DOSE: 100.0 MG
     Route: 048
  6. Compound glycyrrhizin [Concomitant]
     Indication: Erythrodermic psoriasis
     Route: 065
  7. ETANERCEPT [Concomitant]
     Active Substance: ETANERCEPT
     Indication: Psoriatic arthropathy
     Dosage: DAILY DOSE: 1.775 MG, TOTAL: 100.0 MG
     Route: 058
     Dates: start: 2020, end: 202102
  8. ETANERCEPT [Concomitant]
     Active Substance: ETANERCEPT
     Indication: Psoriatic arthropathy
     Dosage: DAILY DOSE: 3.5 MG, TOTAL: 200.0 MG
     Route: 058
     Dates: start: 2020, end: 2020
  9. ETANERCEPT [Concomitant]
     Active Substance: ETANERCEPT
     Indication: Psoriatic arthropathy
     Dosage: DAILY DOSE: 7.25 MG, TOTAL: 25.0 MG?LAST ADMINISTER DATE 2020
     Route: 058
     Dates: start: 20200507

REACTIONS (4)
  - Psoriatic arthropathy [Recovered/Resolved]
  - Psoriasis [Unknown]
  - Therapeutic product effect decreased [Unknown]
  - Therapeutic product effect incomplete [Unknown]

NARRATIVE: CASE EVENT DATE: 20200505
